FAERS Safety Report 9242825 (Version 1)
Quarter: 2013Q2

REPORT INFORMATION
  Report Type: Spontaneous
  Country: DE (occurrence: DE)
  Receive Date: 20130419
  Receipt Date: 20130419
  Transmission Date: 20140414
  Serious: Yes (Hospitalization)
  Sender: FDA-Public Use
  Company Number: DE-ELI_LILLY_AND_COMPANY-DE201304003599

PATIENT
  Sex: Female

DRUGS (5)
  1. FORSTEO [Suspect]
     Indication: OSTEOPOROSIS
     Dosage: UNK, QD
     Route: 058
     Dates: start: 20120411
  2. CORTISONE [Concomitant]
     Dosage: 5 MG, UNKNOWN
     Route: 065
  3. RANTUDIL [Concomitant]
     Dosage: UNK, UNKNOWN
     Route: 065
  4. LEFLUNOMIDE [Concomitant]
     Dosage: UNK, UNKNOWN
     Route: 065
  5. RAMIPRIL [Concomitant]
     Dosage: UNK, UNKNOWN
     Route: 065

REACTIONS (3)
  - Intervertebral disc protrusion [Not Recovered/Not Resolved]
  - Intervertebral disc displacement [Not Recovered/Not Resolved]
  - Nerve injury [Not Recovered/Not Resolved]
